FAERS Safety Report 14590801 (Version 2)
Quarter: 2018Q1

REPORT INFORMATION
  Report Type: Spontaneous
  Country: JP (occurrence: JP)
  Receive Date: 20180302
  Receipt Date: 20180313
  Transmission Date: 20180509
  Serious: Yes (Hospitalization)
  Sender: FDA-Public Use
  Company Number: JP-UCBSA-2018007049

PATIENT
  Age: 85 Year
  Sex: Female

DRUGS (2)
  1. E KEPPRA [Suspect]
     Active Substance: LEVETIRACETAM
     Indication: SEIZURE
     Dosage: 500 MG, ONCE DAILY (QD)
     Route: 048
     Dates: start: 201705
  2. E KEPPRA [Suspect]
     Active Substance: LEVETIRACETAM
     Dosage: 500MG MORNING AND 250MG EVENING, 2X/DAY (BID)
     Route: 048
     Dates: start: 2018

REACTIONS (3)
  - Fall [Unknown]
  - Inappropriate schedule of drug administration [Unknown]
  - Agitation [Unknown]

NARRATIVE: CASE EVENT DATE: 201705
